FAERS Safety Report 5914452-9 (Version None)
Quarter: 2008Q4

REPORT INFORMATION
  Report Type: 
  Country: None (occurrence: None)
  Receive Date: 20081007
  Receipt Date: 20080930
  Transmission Date: 20090506
  Serious: Yes (Other)
  Sender: FDA-Public Use
  Company Number: 034657

PATIENT
  Sex: Female

DRUGS (4)
  1. METHOTREXATE [Suspect]
     Dosage: ORAL
     Route: 048
  2. ORENCIA (ORENCIA) [Suspect]
     Dosage: TOOK MEDICATION 3 TIMES
  3. ENBREL [Suspect]
  4. REMICADE [Suspect]

REACTIONS (1)
  - NEOPLASM MALIGNANT [None]
